FAERS Safety Report 5528953-9 (Version None)
Quarter: 2007Q4

REPORT INFORMATION
  Report Type: 
  Country: None (occurrence: None)
  Receive Date: 20071109
  Receipt Date: 20070423
  Transmission Date: 20080405
  Serious: Yes (Other)
  Sender: FDA-Public Use
  Company Number: PHEH2004US06066

PATIENT
  Sex: Female

DRUGS (7)
  1. ESTRADERM [Suspect]
     Indication: MENOPAUSE
     Dosage: 0.05 MG, QW2, TRANSDERMAL
     Route: 062
     Dates: start: 19990101, end: 20000101
  2. PREMPRO [Suspect]
     Indication: MENOPAUSE
     Dosage: 0.625/2.5 MG, ORAL
     Route: 048
     Dates: start: 20000101, end: 20020101
  3. ESTRASTEP() [Suspect]
     Indication: MENOPAUSE
     Dosage: TRANSDERMAL
     Route: 062
     Dates: end: 20010101
  4. CYCRIN [Suspect]
     Indication: MENOPAUSE
     Dosage: 2.5 MG, ORAL
     Route: 048
     Dates: start: 19990101, end: 20000101
  5. PREMARIN [Suspect]
     Indication: HORMONE REPLACEMENT THERAPY
  6. PROVERA [Suspect]
     Indication: HORMONE REPLACEMENT THERAPY
  7. MEDROXYPROGESTERONE ACETATE [Suspect]
     Indication: HORMONE REPLACEMENT THERAPY

REACTIONS (19)
  - ANXIETY [None]
  - BONE PAIN [None]
  - BREAST CANCER STAGE II [None]
  - BREAST COSMETIC SURGERY [None]
  - BREAST MICROCALCIFICATION [None]
  - BREAST NECROSIS [None]
  - BREAST PROSTHESIS IMPLANTATION [None]
  - DERMAL CYST [None]
  - FAILURE OF IMPLANT [None]
  - HOT FLUSH [None]
  - INSOMNIA [None]
  - MALAISE [None]
  - MALIGNANT BREAST LUMP REMOVAL [None]
  - OSTEOPENIA [None]
  - OVARIAN CYST [None]
  - PELVIC PAIN [None]
  - RADIOTHERAPY [None]
  - RASH [None]
  - UTERINE LEIOMYOMA [None]
